FAERS Safety Report 25177689 (Version 1)
Quarter: 2025Q2

REPORT INFORMATION
  Report Type: Other
  Country: JP (occurrence: JP)
  Receive Date: 20250409
  Receipt Date: 20250409
  Transmission Date: 20250716
  Serious: Yes (Other)
  Sender: WOODWARD PHARMA SERVICES
  Company Number: JP-WW-2025-39959852

PATIENT
  Age: 70 Year
  Sex: Male

DRUGS (1)
  1. FLUCONAZOLE [Suspect]
     Active Substance: FLUCONAZOLE
     Indication: Oesophageal candidiasis

REACTIONS (1)
  - Drug ineffective [Unknown]
